FAERS Safety Report 20456316 (Version 2)
Quarter: 2022Q1

REPORT INFORMATION
  Report Type: Spontaneous
  Country: JP (occurrence: JP)
  Receive Date: 20220210
  Receipt Date: 20220218
  Transmission Date: 20220423
  Serious: Yes (Death, Hospitalization)
  Sender: FDA-Public Use
  Company Number: JP-BAYER-2021A271372

PATIENT
  Age: 89 Year
  Sex: Male
  Weight: 68.2 kg

DRUGS (1)
  1. NUBEQA [Suspect]
     Active Substance: DAROLUTAMIDE
     Indication: Hormone-refractory prostate cancer
     Dosage: DAILY DOSE 1200MG
     Route: 048
     Dates: start: 20211110, end: 20211216

REACTIONS (7)
  - Acute respiratory distress syndrome [Fatal]
  - Platelet count decreased [None]
  - Drug eruption [None]
  - Erythema [None]
  - Oedema peripheral [None]
  - Rash [None]
  - Purpura [None]

NARRATIVE: CASE EVENT DATE: 20211210
